FAERS Safety Report 8605566-3 (Version None)
Quarter: 2012Q3

REPORT INFORMATION
  Report Type: 
  Country: None (occurrence: None)
  Receive Date: 20120820
  Receipt Date: 20120810
  Transmission Date: 20120928
  Serious: Yes (Other)
  Sender: FDA-Public Use
  Company Number: US-SANOFI-AVENTIS-2012SA057163

PATIENT
  Age: 44 Year
  Sex: Female
  Weight: 66 kg

DRUGS (7)
  1. OXALIPLATIN [Suspect]
     Route: 041
     Dates: start: 20120807, end: 20120807
  2. LEUCOVORIN CALCIUM [Concomitant]
  3. LOPERAMIDE [Concomitant]
  4. OXALIPLATIN [Suspect]
     Dosage: 80% OF DOSAGE (DOSE NOT PROVIDED)
     Route: 041
     Dates: start: 20120718, end: 20120718
  5. NEULASTA [Concomitant]
     Indication: NEUTROPENIA
     Dosage: POST CHEMO TIMES 1
  6. FLUOROURACIL [Concomitant]
  7. OXALIPLATIN [Suspect]
     Indication: COLORECTAL CANCER
     Route: 041
     Dates: start: 20120523, end: 20120523

REACTIONS (3)
  - ABASIA [None]
  - MUSCULAR WEAKNESS [None]
  - MUSCLE CONTRACTIONS INVOLUNTARY [None]
